FAERS Safety Report 5158556-X (Version None)
Quarter: 2006Q4

REPORT INFORMATION
  Report Type: 
  Country: None (occurrence: None)
  Receive Date: 20061128
  Receipt Date: 20061003
  Transmission Date: 20070319
  Serious: Yes (Other)
  Sender: FDA-Public Use
  Company Number: FR-ROCHE-465918

PATIENT
  Age: 66 Year
  Sex: Male
  Weight: 86 kg

DRUGS (6)
  1. COPEGUS [Suspect]
     Indication: HEPATITIS C
     Route: 048
     Dates: start: 20060118, end: 20060929
  2. COPEGUS [Suspect]
     Route: 048
     Dates: start: 20060929
  3. PEGASYS [Suspect]
     Indication: HEPATITIS C
     Route: 065
  4. INSUMAN BASAL [Concomitant]
     Dosage: FORM REPORTED AS INJECTABLE SOLUTION.
     Route: 058
     Dates: start: 20030615
  5. DIAMICRON [Concomitant]
     Route: 048
     Dates: start: 20010615
  6. METFORMIN HCL [Concomitant]
     Route: 048
     Dates: start: 19910615

REACTIONS (2)
  - ANAEMIA [None]
  - GLYCOSYLATED HAEMOGLOBIN DECREASED [None]
